FAERS Safety Report 7621745-6 (Version None)
Quarter: 2011Q3

REPORT INFORMATION
  Report Type: 
  Country: None (occurrence: None)
  Receive Date: 20110719
  Receipt Date: 20110706
  Transmission Date: 20111222
  Serious: Yes (Hospitalization)
  Sender: FDA-Public Use
  Company Number: GB-BRISTOL-MYERS SQUIBB COMPANY-15802424

PATIENT
  Age: 68 Year
  Sex: Male

DRUGS (5)
  1. IPILIMUMAB [Suspect]
     Indication: MALIGNANT MELANOMA
     Dosage: 06AUG10-08OCT10 21JAN11-08APR11
     Route: 042
     Dates: start: 20100806, end: 20110408
  2. HYDROCORTISONE [Concomitant]
     Dosage: 1 DF= 10MG,5MG,5MG.
     Dates: start: 20110505
  3. OMEPRAZOLE [Concomitant]
     Dates: start: 20110101
  4. LEVOTHYROXINE SODIUM [Concomitant]
     Dates: start: 20110429
  5. PLACEBO [Suspect]
     Indication: MALIGNANT MELANOMA
     Dates: start: 20100806, end: 20110408

REACTIONS (4)
  - OBSESSIVE-COMPULSIVE DISORDER [None]
  - ENCEPHALOPATHY [None]
  - AUTOIMMUNE NEUROPATHY [None]
  - SUICIDAL IDEATION [None]
